FAERS Safety Report 12162129 (Version 6)
Quarter: 2018Q1

REPORT INFORMATION
  Report Type: Spontaneous
  Country: US (occurrence: US)
  Receive Date: 20160309
  Receipt Date: 20180221
  Transmission Date: 20180508
  Serious: Yes (Hospitalization, Disabling, Other)
  Sender: FDA-Public Use
  Company Number: US-009507513-1603USA004024

PATIENT
  Sex: Female
  Weight: 63.49 kg

DRUGS (6)
  1. FOSAMAX [Suspect]
     Active Substance: ALENDRONATE SODIUM
     Dosage: 70 MG, QW
     Route: 048
     Dates: start: 20070830, end: 20080122
  2. ALENDRONATE SODIUM. [Suspect]
     Active Substance: ALENDRONATE SODIUM
     Indication: OSTEOPOROSIS
     Dosage: 70 MG, QW
     Route: 048
     Dates: start: 20080218, end: 20091221
  3. CALCIUM (UNSPECIFIED) (+) VITAMIN D (UNSPECIFIED) [Concomitant]
     Active Substance: CALCIUM CARBONATE\VITAMIN D
     Indication: PRODUCT USED FOR UNKNOWN INDICATION
     Dosage: 600 MG, QD
     Route: 065
     Dates: start: 2000
  4. FOSAMAX [Suspect]
     Active Substance: ALENDRONATE SODIUM
     Indication: OSTEOPOROSIS
     Dosage: 10 MG, QD
     Route: 048
     Dates: end: 20010503
  5. VITAMINS (UNSPECIFIED) [Concomitant]
     Active Substance: VITAMINS
     Indication: PRODUCT USED FOR UNKNOWN INDICATION
     Dosage: UNK, QD
     Route: 065
     Dates: start: 2000
  6. FOSAMAX [Suspect]
     Active Substance: ALENDRONATE SODIUM
     Indication: OSTEOPOROSIS
     Dosage: 70 MG, QW
     Route: 048
     Dates: start: 200105, end: 20061204

REACTIONS (32)
  - Osteomalacia [Unknown]
  - Hyperlipidaemia [Unknown]
  - Hypertension [Unknown]
  - Anxiety [Unknown]
  - Foot deformity [Unknown]
  - Blood cholesterol increased [Unknown]
  - Foot deformity [Unknown]
  - Back pain [Recovered/Resolved]
  - Osteoarthritis [Unknown]
  - Blood cholesterol increased [Unknown]
  - Femur fracture [Recovered/Resolved]
  - Gait disturbance [Unknown]
  - Arthritis [Unknown]
  - Neurofibromatosis [Unknown]
  - Uterine leiomyoma [Unknown]
  - Depression [Unknown]
  - Hepatic cyst [Not Recovered/Not Resolved]
  - Hepatic steatosis [Unknown]
  - Osteoarthritis [Unknown]
  - Renal cyst [Unknown]
  - Vaginitis gardnerella [Unknown]
  - Femur fracture [Recovered/Resolved]
  - Fall [Unknown]
  - Ligament sprain [Unknown]
  - Abdominal pain [Unknown]
  - Self esteem decreased [Unknown]
  - Breast calcifications [Unknown]
  - Osteoporosis [Unknown]
  - Gastrooesophageal reflux disease [Unknown]
  - Bundle branch block left [Unknown]
  - Uterine prolapse [Unknown]
  - Weight increased [Unknown]

NARRATIVE: CASE EVENT DATE: 20000403
